FAERS Safety Report 6569686-X (Version None)
Quarter: 2010Q1

REPORT INFORMATION
  Report Type: 
  Country: None (occurrence: None)
  Receive Date: 20100204
  Receipt Date: 20100125
  Transmission Date: 20100710
  Serious: Yes (Other)
  Sender: FDA-Public Use
  Company Number: PHEH2009US14977

PATIENT
  Sex: Female

DRUGS (10)
  1. EXJADE [Suspect]
     Indication: MYELODYSPLASTIC SYNDROME
     Dosage: 625 MG, QD
     Route: 048
     Dates: start: 20090901
  2. EXJADE [Suspect]
     Indication: IRON OVERLOAD
     Dosage: 1000 MG, QD
  3. SANDIMMUNE [Suspect]
  4. METOPROLOL TARTRATE [Suspect]
  5. IMMUNE GLOBULIN (HUMAN) [Suspect]
  6. CENTRUM SILVER [Concomitant]
  7. MONOPRIL [Concomitant]
  8. NEXIUM [Concomitant]
  9. ARANESP [Concomitant]
  10. TOPROL-XL [Concomitant]

REACTIONS (15)
  - ARTHRALGIA [None]
  - DIARRHOEA [None]
  - DRUG TOXICITY [None]
  - GLOSSODYNIA [None]
  - HEADACHE [None]
  - OROPHARYNGEAL PAIN [None]
  - PHOTOPSIA [None]
  - RASH [None]
  - RHEUMATOID ARTHRITIS [None]
  - TONGUE ULCERATION [None]
  - ULCER [None]
  - VISUAL IMPAIRMENT [None]
  - VITREOUS DETACHMENT [None]
  - VITREOUS FLOATERS [None]
  - VOMITING [None]
